FAERS Safety Report 15450511 (Version 2)
Quarter: 2019Q1

REPORT INFORMATION
  Report Type: Spontaneous
  Country: US (occurrence: US)
  Receive Date: 20181001
  Receipt Date: 20190214
  Transmission Date: 20190417
  Serious: Yes (Hospitalization, Other)
  Sender: FDA-Public Use
  Company Number: US-AUROBINDO-AUR-APL-2018-047478

PATIENT

DRUGS (1)
  1. LEVOFLOXACIN. [Suspect]
     Active Substance: LEVOFLOXACIN
     Indication: EAR INFECTION
     Dosage: 500 MILLIGRAM, TWO TIMES A DAY
     Route: 048

REACTIONS (17)
  - Skin discolouration [Recovered/Resolved]
  - Neurotoxicity [Unknown]
  - Muscle spasms [Not Recovered/Not Resolved]
  - Peripheral coldness [Recovered/Resolved]
  - Peripheral swelling [Recovered/Resolved]
  - Laryngospasm [Not Recovered/Not Resolved]
  - Hyperaesthesia [Unknown]
  - Paresis [Recovered/Resolved]
  - Pain in extremity [Recovered/Resolved]
  - Complex regional pain syndrome [Recovered/Resolved]
  - Dyskinesia [Not Recovered/Not Resolved]
  - Pain [Recovered/Resolved]
  - Movement disorder [Recovered/Resolved]
  - Allodynia [Recovered/Resolved]
  - Deep vein thrombosis [Recovered/Resolved]
  - Immobile [Recovered/Resolved]
  - Musculoskeletal stiffness [Not Recovered/Not Resolved]
